FAERS Safety Report 9300945 (Version 2)
Quarter: 2013Q3

REPORT INFORMATION
  Report Type: Spontaneous
  Country: DE (occurrence: DE)
  Receive Date: 20130521
  Receipt Date: 20130708
  Transmission Date: 20140515
  Serious: Yes (Other)
  Sender: FDA-Public Use
  Company Number: DE-PFIZER INC-2013150154

PATIENT
  Age: 14 Year
  Sex: Female
  Weight: 48.6 kg

DRUGS (1)
  1. GENOTROPIN [Suspect]
     Indication: DYSCHONDROSTEOSIS
     Dosage: 1.35 MG, 1X/DAY
     Route: 058
     Dates: start: 20120514

REACTIONS (2)
  - Dysplastic naevus [Recovered/Resolved]
  - Pigmentation disorder [Recovered/Resolved]
